FAERS Safety Report 25281768 (Version 1)
Quarter: 2025Q2

REPORT INFORMATION
  Report Type: Spontaneous
  Country: US (occurrence: US)
  Receive Date: 20250508
  Receipt Date: 20250508
  Transmission Date: 20250716
  Serious: No
  Sender: BIONPHARMA INC.
  Company Number: US-Bion-014909

PATIENT
  Sex: Male

DRUGS (1)
  1. NAPROXEN SODIUM [Suspect]
     Active Substance: NAPROXEN SODIUM
     Indication: Arthritis
     Route: 048

REACTIONS (2)
  - Poor quality product administered [Unknown]
  - No adverse event [Unknown]
